FAERS Safety Report 8353485-2 (Version None)
Quarter: 2012Q2

REPORT INFORMATION
  Report Type: 
  Country: None (occurrence: None)
  Receive Date: 20120511
  Receipt Date: 20110415
  Transmission Date: 20120825
  Serious: No
  Sender: FDA-Public Use
  Company Number: US-GLAXOSMITHKLINE-A0923197A

PATIENT
  Age: 54 Year
  Sex: Female

DRUGS (9)
  1. METAMIZOL [Concomitant]
  2. OXYCODONE HCL [Concomitant]
  3. BUPROPION HCL [Concomitant]
  4. ZOFRAN [Concomitant]
  5. XELODA [Concomitant]
  6. PROTONIX [Concomitant]
  7. XGEVA [Concomitant]
  8. TYKERB [Suspect]
     Indication: BREAST CANCER
     Dosage: 1250MG PER DAY
     Route: 048
     Dates: start: 20110330
  9. CITALOPRAM HYDROBROMIDE [Concomitant]

REACTIONS (5)
  - DIARRHOEA [None]
  - VOMITING [None]
  - WEIGHT DECREASED [None]
  - DYSPEPSIA [None]
  - NAUSEA [None]
